FAERS Safety Report 15653327 (Version 1)
Quarter: 2018Q4

REPORT INFORMATION
  Report Type: Spontaneous
  Country: GB (occurrence: GB)
  Receive Date: 20181124
  Receipt Date: 20181124
  Transmission Date: 20190205
  Serious: Yes (Other)
  Sender: FDA-Public Use
  Company Number: GB-TEVA-2018-GB-977687

PATIENT
  Age: 43 Year
  Sex: Female

DRUGS (1)
  1. PACLITAXEL. [Suspect]
     Active Substance: PACLITAXEL
     Dosage: 336 MG OVER 5 HOURS
     Route: 042
     Dates: start: 20180718, end: 20180718

REACTIONS (6)
  - Abdominal pain [Unknown]
  - Loss of consciousness [Recovered/Resolved]
  - Chest discomfort [Unknown]
  - Renal pain [Unknown]
  - Nausea [Unknown]
  - Dyspnoea [Unknown]

NARRATIVE: CASE EVENT DATE: 20180718
